FAERS Safety Report 12914726 (Version 1)
Quarter: 2016Q4

REPORT INFORMATION
  Report Type: Spontaneous
  Country: US (occurrence: US)
  Receive Date: 20161106
  Receipt Date: 20161106
  Transmission Date: 20170207
  Serious: No
  Sender: FDA-Public Use
  Company Number: US-RELYPSA-RLY2016002040

PATIENT
  Sex: Female

DRUGS (25)
  1. VELTASSA [Suspect]
     Active Substance: PATIROMER
     Indication: HYPERKALAEMIA
     Dosage: 8.4 G, QD
     Route: 048
  2. ALLOPURINOL. [Concomitant]
     Active Substance: ALLOPURINOL
  3. NITRO-DUR [Concomitant]
     Active Substance: NITROGLYCERIN
  4. NYSTATIN. [Concomitant]
     Active Substance: NYSTATIN
  5. ASPIRIN                            /00002701/ [Concomitant]
     Active Substance: ASPIRIN
  6. KEPPRA [Concomitant]
     Active Substance: LEVETIRACETAM
  7. LASIX [Concomitant]
     Active Substance: FUROSEMIDE
  8. PROMETHAZINE HCL [Concomitant]
     Active Substance: PROMETHAZINE HYDROCHLORIDE
  9. VIMPAT [Concomitant]
     Active Substance: LACOSAMIDE
  10. DILANTIN [Concomitant]
     Active Substance: PHENYTOIN
  11. HYDRALAZINE HCL [Concomitant]
     Active Substance: HYDRALAZINE HYDROCHLORIDE
  12. IPRATROPIUM BROMIDE. [Concomitant]
     Active Substance: IPRATROPIUM BROMIDE
  13. LANTUS [Concomitant]
     Active Substance: INSULIN GLARGINE
  14. NITROSTAT [Concomitant]
     Active Substance: NITROGLYCERIN
  15. PHENYTEK [Concomitant]
     Active Substance: PHENYTOIN SODIUM
  16. SERTRALINE HCL [Concomitant]
     Active Substance: SERTRALINE HYDROCHLORIDE
  17. SODIUM BICARBONATE. [Concomitant]
     Active Substance: SODIUM BICARBONATE
  18. COREG [Concomitant]
     Active Substance: CARVEDILOL
  19. HYDROCODONE BITARTRATE AND ACETAMINOPHEN [Concomitant]
     Active Substance: ACETAMINOPHEN\HYDROCODONE BITARTRATE
  20. OMEPRAZOLE. [Concomitant]
     Active Substance: OMEPRAZOLE
  21. ROZEREM [Concomitant]
     Active Substance: RAMELTEON
  22. FOLIC ACID. [Concomitant]
     Active Substance: FOLIC ACID
  23. HUMALOG [Concomitant]
     Active Substance: INSULIN LISPRO
  24. PLAVIX [Concomitant]
     Active Substance: CLOPIDOGREL BISULFATE
  25. SINGULAIR [Concomitant]
     Active Substance: MONTELUKAST SODIUM

REACTIONS (3)
  - Diarrhoea [Unknown]
  - Nausea [Unknown]
  - Abdominal pain upper [Unknown]
